FAERS Safety Report 6856361-7 (Version None)
Quarter: 2010Q3

REPORT INFORMATION
  Report Type: 
  Country: None (occurrence: None)
  Receive Date: 20100715
  Receipt Date: 20100715
  Transmission Date: 20110219
  Serious: Yes (Hospitalization)
  Sender: FDA-Public Use
  Company Number: None

PATIENT
  Age: 54 Year
  Sex: Male
  Weight: 123 kg

DRUGS (11)
  1. GEMCITABINE HCL [Suspect]
     Indication: LIPOSARCOMA
     Dosage: 506MG/M2, 21 DAY INT, IV
     Route: 042
     Dates: start: 20100408, end: 20100624
  2. DOCETAXEL [Suspect]
     Dosage: 56MG/M2, 21 DAY INT, IV
     Route: 042
     Dates: start: 20100415, end: 20100701
  3. ASPIRIN [Concomitant]
  4. DEXAMETHASONE [Concomitant]
  5. GLUCOSAMINE [Concomitant]
  6. VICODIN [Concomitant]
  7. ATIVAN [Concomitant]
  8. MULTI-VITAMIN [Concomitant]
  9. COMPAZINE [Concomitant]
  10. ANDROGEL [Concomitant]
  11. NEUPOGEN [Concomitant]

REACTIONS (4)
  - COUGH [None]
  - FIBRIN D DIMER INCREASED [None]
  - PYREXIA [None]
  - SINUS TACHYCARDIA [None]
